FAERS Safety Report 10207558 (Version 1)
Quarter: 2014Q2

REPORT INFORMATION
  Report Type: Spontaneous
  Country: US (occurrence: US)
  Receive Date: 20140530
  Receipt Date: 20140530
  Transmission Date: 20141212
  Serious: No
  Sender: FDA-Public Use
  Company Number: US-GLAXOSMITHKLINE-A1049472A

PATIENT
  Age: 80 Year
  Sex: Male

DRUGS (2)
  1. VENTOLIN [Suspect]
     Indication: PNEUMONIA
     Dosage: 2PUFF FOUR TIMES PER DAY
     Route: 055
     Dates: start: 20131110
  2. MULTIPLE MEDICATION [Concomitant]

REACTIONS (3)
  - Drug dose omission [Unknown]
  - Off label use [Unknown]
  - Product quality issue [Unknown]
